FAERS Safety Report 5616216-2 (Version None)
Quarter: 2008Q1

REPORT INFORMATION
  Report Type: 
  Country: None (occurrence: None)
  Receive Date: 20080204
  Receipt Date: 20080117
  Transmission Date: 20080703
  Serious: No
  Sender: FDA-Public Use
  Company Number: 8029457

PATIENT
  Age: 6 Year
  Sex: Female
  Weight: 28 kg

DRUGS (3)
  1. EQUASYM [Suspect]
     Indication: ATTENTION DEFICIT/HYPERACTIVITY DISORDER
     Dosage: 20 MG 1/D
     Dates: start: 20061220, end: 20061226
  2. EQUASYM [Suspect]
     Indication: ATTENTION DEFICIT/HYPERACTIVITY DISORDER
     Dosage: 10 MG 1/D
     Dates: start: 20061227, end: 20070116
  3. EQUASYM [Suspect]
     Indication: ATTENTION DEFICIT/HYPERACTIVITY DISORDER
     Dosage: 20 MG 1/D
     Dates: start: 20070117

REACTIONS (1)
  - TIC [None]
